FAERS Safety Report 11444383 (Version 2)
Quarter: 2015Q3

REPORT INFORMATION
  Report Type: Spontaneous
  Country: IT (occurrence: IT)
  Receive Date: 20150902
  Receipt Date: 20150907
  Transmission Date: 20151125
  Serious: Yes (Hospitalization)
  Sender: FDA-Public Use
  Company Number: IT-SUN PHARMACEUTICAL INDUSTRIES LTD-2015RR-102375

PATIENT

DRUGS (2)
  1. CITALOPRAM [Suspect]
     Active Substance: CITALOPRAM HYDROBROMIDE
     Indication: OVERDOSE
     Dosage: 400MG TOTAL (20 TABLETS OF 20MG)
     Route: 048
  2. ETILTOX [Concomitant]
     Active Substance: DISULFIRAM
     Indication: ALCOHOL ABUSE
     Dosage: UNK
     Route: 065

REACTIONS (3)
  - Confusional state [Recovering/Resolving]
  - Overdose [Recovering/Resolving]
  - Intentional self-injury [Recovering/Resolving]

NARRATIVE: CASE EVENT DATE: 20150708
